FAERS Safety Report 7041024-8 (Version None)
Quarter: 2010Q3

REPORT INFORMATION
  Report Type: 
  Country: None (occurrence: None)
  Receive Date: 20100929
  Receipt Date: 20100607
  Transmission Date: 20110219
  Serious: No
  Sender: FDA-Public Use
  Company Number: US-WYE-H15689710

PATIENT
  Age: 66 Year
  Sex: Female
  Weight: 65.83 kg

DRUGS (9)
  1. PRISTIQ [Suspect]
     Indication: DEPRESSION
     Dosage: 50 MG 1X PER 1 DAY
     Dates: start: 20100401
  2. XANAX [Concomitant]
  3. TYLENOL PM (DIPHENHYDRAMINE/PARACETAMOL) [Concomitant]
  4. DILTIAZEM [Concomitant]
  5. VITAMIN D [Concomitant]
  6. NIASPAN [Concomitant]
  7. ASPIRIN [Concomitant]
  8. ASCORBIC ACID [Concomitant]
  9. VITAMIN E [Concomitant]

REACTIONS (10)
  - ACTIVITIES OF DAILY LIVING IMPAIRED [None]
  - AGGRESSION [None]
  - DRUG EFFECT DECREASED [None]
  - INITIAL INSOMNIA [None]
  - INSOMNIA [None]
  - NECK PAIN [None]
  - PAIN [None]
  - SCREAMING [None]
  - SOCIAL AVOIDANT BEHAVIOUR [None]
  - THERAPEUTIC RESPONSE UNEXPECTED [None]
